FAERS Safety Report 25745553 (Version 1)
Quarter: 2025Q3

REPORT INFORMATION
  Report Type: Spontaneous
  Country: CA (occurrence: CA)
  Receive Date: 20250901
  Receipt Date: 20250901
  Transmission Date: 20251021
  Serious: Yes (Death, Hospitalization)
  Sender: ROCHE
  Company Number: CA-ROCHE-10000375845

PATIENT
  Age: 41 Year
  Sex: Male

DRUGS (1)
  1. ACTEMRA [Suspect]
     Active Substance: TOCILIZUMAB
     Indication: Product used for unknown indication
     Route: 065

REACTIONS (8)
  - Acute kidney injury [Fatal]
  - Arthralgia [Fatal]
  - Electrolyte imbalance [Fatal]
  - Lactic acidosis [Fatal]
  - Neutropenia [Fatal]
  - Respiratory syncytial virus infection [Fatal]
  - Sepsis [Fatal]
  - Staphylococcal bacteraemia [Fatal]
